FAERS Safety Report 11220236 (Version 1)
Quarter: 2015Q2

REPORT INFORMATION
  Report Type: Spontaneous
  Country: US (occurrence: US)
  Receive Date: 20150625
  Receipt Date: 20150625
  Transmission Date: 20150821
  Serious: No
  Sender: FDA-Public Use
  Company Number: US-EXELIXIS-CABO-14003962

PATIENT
  Sex: Male

DRUGS (11)
  1. COMETRIQ [Suspect]
     Active Substance: CABOZANTINIB S-MALATE
     Dosage: 40 MG, QOD
     Route: 048
     Dates: start: 20140724, end: 20141222
  2. IMODIUM [Concomitant]
     Active Substance: LOPERAMIDE HYDROCHLORIDE
  3. COMETRIQ [Suspect]
     Active Substance: CABOZANTINIB S-MALATE
     Indication: NEUROENDOCRINE CARCINOMA OF THE SKIN
     Dosage: 60 MG, QD
     Route: 048
     Dates: start: 20131222
  4. COMETRIQ [Suspect]
     Active Substance: CABOZANTINIB S-MALATE
     Dosage: 60 MG, QD
     Route: 048
     Dates: start: 20141222, end: 201505
  5. LISINOPRIL. [Concomitant]
     Active Substance: LISINOPRIL
  6. COMETRIQ [Suspect]
     Active Substance: CABOZANTINIB S-MALATE
     Dosage: 60 MG, QOD
     Dates: start: 20140724, end: 20141221
  7. SIMVASTATIN. [Concomitant]
     Active Substance: SIMVASTATIN
  8. COMETRIQ [Suspect]
     Active Substance: CABOZANTINIB S-MALATE
     Dosage: 60 MG, QD
     Route: 048
     Dates: start: 20140107, end: 20140724
  9. FIBER [Concomitant]
     Active Substance: PSYLLIUM HUSK
  10. TYLENOL [Concomitant]
     Active Substance: ACETAMINOPHEN
  11. CVS NASAL DECONGESTANT PE [Concomitant]
     Indication: NEUROENDOCRINE CARCINOMA OF THE SKIN

REACTIONS (6)
  - Gastric disorder [Unknown]
  - Hypertension [Unknown]
  - Diarrhoea [Not Recovered/Not Resolved]
  - Food craving [Unknown]
  - Memory impairment [Unknown]
  - Off label use [Unknown]

NARRATIVE: CASE EVENT DATE: 2014
